FAERS Safety Report 16731260 (Version 1)
Quarter: 2019Q3

REPORT INFORMATION
  Report Type: Report from Study
  Country: PE (occurrence: PE)
  Receive Date: 20190822
  Receipt Date: 20190822
  Transmission Date: 20191005
  Serious: Yes (Death, Hospitalization)
  Sender: FDA-Public Use
  Company Number: PE-SEATTLE GENETICS-2018SGN03336

PATIENT
  Age: 49 Year
  Sex: Male

DRUGS (1)
  1. BRENTUXIMAB VEDOTIN-MPI [Suspect]
     Active Substance: BRENTUXIMAB VEDOTIN
     Indication: HODGKIN^S DISEASE
     Dosage: 100 MG, UNK
     Route: 042
     Dates: start: 20181205

REACTIONS (8)
  - Death [Fatal]
  - Pneumonia [Fatal]
  - Hypoaesthesia [Unknown]
  - Encephalitis [Fatal]
  - Cough [Recovered/Resolved]
  - Platelet count decreased [Unknown]
  - Diarrhoea [Fatal]
  - Abdominal pain upper [Unknown]

NARRATIVE: CASE EVENT DATE: 20190304
